FAERS Safety Report 9120927 (Version 1)
Quarter: 2013Q1

REPORT INFORMATION
  Report Type: Spontaneous
  Country: FR (occurrence: FR)
  Receive Date: 20130226
  Receipt Date: 20130226
  Transmission Date: 20140127
  Serious: Yes (Hospitalization)
  Sender: FDA-Public Use
  Company Number: FR-GLAXOSMITHKLINE-B0869225A

PATIENT
  Age: 80 None
  Sex: Female

DRUGS (9)
  1. DEROXAT [Suspect]
     Indication: PRODUCT USED FOR UNKNOWN INDICATION
     Dosage: 40MG PER DAY
     Route: 048
     Dates: end: 20130107
  2. NORFLOXACIN [Suspect]
     Indication: URINARY TRACT INFECTION
     Route: 048
     Dates: start: 20130102, end: 20130104
  3. CEFUROXIME [Suspect]
     Indication: URINARY TRACT INFECTION
     Route: 048
     Dates: start: 20130102, end: 20130104
  4. SERETIDE [Concomitant]
     Dosage: 2PUFF PER DAY
     Route: 055
  5. PANTOPRAZOLE [Concomitant]
     Dosage: 20MG PER DAY
     Route: 048
  6. LORAZEPAM [Concomitant]
     Dosage: 3.75MG PER DAY
     Route: 048
  7. IXPRIM [Concomitant]
     Dosage: 3TAB PER DAY
     Route: 048
  8. VESICARE [Concomitant]
     Dosage: 5MG PER DAY
     Route: 048
  9. MYOLASTAN [Concomitant]
     Route: 048
     Dates: start: 20121228

REACTIONS (4)
  - Mania [Recovered/Resolved]
  - Abnormal behaviour [Recovered/Resolved]
  - Psychomotor hyperactivity [Recovered/Resolved]
  - Delirium [Recovered/Resolved]
